FAERS Safety Report 9659097 (Version 1)
Quarter: 2013Q4

REPORT INFORMATION
  Report Type: Spontaneous
  Country: US (occurrence: US)
  Receive Date: 20131031
  Receipt Date: 20131031
  Transmission Date: 20140711
  Serious: No
  Sender: FDA-Public Use
  Company Number: US-BIOGENIDEC-2013BI102358

PATIENT
  Sex: Male

DRUGS (2)
  1. AVONEX [Suspect]
     Indication: MULTIPLE SCLEROSIS
     Route: 030
     Dates: start: 20050401, end: 20100201
  2. REBIF [Concomitant]
     Indication: MULTIPLE SCLEROSIS

REACTIONS (3)
  - Scar [Not Recovered/Not Resolved]
  - Injection site injury [Unknown]
  - Injection site pain [Unknown]
